FAERS Safety Report 4805921-3 (Version None)
Quarter: 2005Q4

REPORT INFORMATION
  Report Type: 
  Country: None (occurrence: None)
  Receive Date: 20051021
  Receipt Date: 20050818
  Transmission Date: 20060501
  Serious: Yes (Hospitalization, Other)
  Sender: FDA-Public Use
  Company Number: PHEH2005US09267

PATIENT
  Age: 81 Year
  Sex: Female

DRUGS (28)
  1. AREDIA [Suspect]
     Indication: METASTASES TO BONE
     Dosage: 90 MG, QMO
     Dates: start: 19970320, end: 20011011
  2. ZOMETA [Suspect]
     Indication: METASTASES TO BONE
     Dosage: 4 MG, QMO
     Dates: start: 20011108, end: 20020620
  3. PAMIDRONATE DISODIUM [Suspect]
     Indication: METASTASES TO BONE
     Dosage: 90 MG, QMO
     Dates: start: 20020717, end: 20030701
  4. PAMIDRONATE DISODIUM [Suspect]
     Dosage: 90 MG, QMO
     Dates: start: 20030901, end: 20031001
  5. NSAID'S [Concomitant]
     Indication: PAIN
  6. OXYCONTIN [Concomitant]
     Indication: PAIN
  7. FEMARA [Concomitant]
  8. FASLODEX [Concomitant]
  9. TAXOL [Concomitant]
     Dosage: 7 CYCLES
     Dates: start: 19990204, end: 19990318
  10. CYTOXAN [Concomitant]
  11. METHOTREXATE [Concomitant]
  12. ZOFRAN [Concomitant]
  13. FLUOROURACIL [Concomitant]
  14. DYNACIRC [Concomitant]
     Dosage: 2.5 MG, UNK
  15. LOZOL [Concomitant]
     Dosage: 2.5 MG, UNK
  16. ZOLADEX [Concomitant]
     Dosage: 3.6 MG, QMO
  17. PEPCID [Concomitant]
     Dosage: 20 MG, QD
  18. ALEVE [Concomitant]
     Dosage: 2 TABS PRN
  19. DONNATAL [Concomitant]
     Dosage: UNK, PRN
  20. COMPAZINE [Concomitant]
     Dosage: 10 MG Q4-6HRS
  21. REGLAN [Concomitant]
     Dosage: 10 MG, QID
  22. PRILOSEC [Concomitant]
     Dosage: 20 MG, UNK
  23. XANAX [Concomitant]
     Dosage: 0.25 MG, TID
  24. NEURONTIN [Concomitant]
     Dosage: 300 MG, TID
     Dates: start: 19990101
  25. DURAGESIC-100 [Concomitant]
     Dosage: 50 MG, Q72H
  26. ZANTAC [Concomitant]
     Dosage: 150 MG, BID
  27. METOCLOPRAMIDE [Concomitant]
     Dosage: 10 MG AC AND HS
  28. PROPULSID [Concomitant]
     Dosage: 10 MG AC AND HS

REACTIONS (49)
  - ALVEOLOPLASTY [None]
  - ARRHYTHMIA [None]
  - ATRIAL FIBRILLATION [None]
  - BACTERIA TISSUE SPECIMEN IDENTIFIED [None]
  - BLOOD CREATININE INCREASED [None]
  - BONE DISORDER [None]
  - BONE OPERATION [None]
  - BONE SWELLING [None]
  - BONE TRIMMING [None]
  - BREATH ODOUR [None]
  - CARDIAC STRESS TEST ABNORMAL [None]
  - CARDIOMEGALY [None]
  - CHEST PAIN [None]
  - DENTAL EXAMINATION ABNORMAL [None]
  - DENTURE WEARER [None]
  - DRY MOUTH [None]
  - DYSPNOEA [None]
  - DYSPNOEA EXERTIONAL [None]
  - EXOSTOSIS [None]
  - FUNGAL INFECTION [None]
  - HYPERHIDROSIS [None]
  - HYPOAESTHESIA [None]
  - IMPAIRED HEALING [None]
  - INFLAMMATION [None]
  - INTERSTITIAL LUNG DISEASE [None]
  - JAW OPERATION [None]
  - LIP ULCERATION [None]
  - METASTASES TO BONE [None]
  - MOUTH ULCERATION [None]
  - NAUSEA [None]
  - ORAL SURGERY [None]
  - OSTEOMYELITIS [None]
  - OSTEONECROSIS [None]
  - OSTEOSCLEROSIS [None]
  - PAIN IN JAW [None]
  - PERIODONTAL DISEASE [None]
  - RASH [None]
  - RENAL FAILURE [None]
  - SIALOADENITIS [None]
  - STOMATITIS [None]
  - SWELLING FACE [None]
  - TACHYCARDIA [None]
  - TONGUE DRY [None]
  - TONGUE INJURY [None]
  - TOOTH DISORDER [None]
  - TOOTH EXTRACTION [None]
  - VOMITING [None]
  - WEIGHT DECREASED [None]
  - WOUND DEHISCENCE [None]
